FAERS Safety Report 4914922-6 (Version None)
Quarter: 2006Q1

REPORT INFORMATION
  Report Type: 
  Country: None (occurrence: None)
  Receive Date: 20060215
  Receipt Date: 20060215
  Transmission Date: 20060701
  Serious: Yes (Hospitalization)
  Sender: FDA-Public Use
  Company Number: None

PATIENT
  Sex: Female
  Weight: 81.6475 kg

DRUGS (3)
  1. LAMICTAL [Suspect]
     Indication: BIPOLAR DISORDER
     Dosage: PO [STARTED 18 DAYS PRIOR TO THE ER VISIT]
     Route: 048
  2. SYNTHROID [Concomitant]
  3. LITHIUM [Concomitant]

REACTIONS (1)
  - RASH [None]
